FAERS Safety Report 19578110 (Version 1)
Quarter: 2021Q3

REPORT INFORMATION
  Report Type: Spontaneous
  Country: GB (occurrence: GB)
  Receive Date: 20210719
  Receipt Date: 20210719
  Transmission Date: 20211014
  Serious: Yes (Hospitalization)
  Sender: FDA-Public Use
  Company Number: GB-MALLINCKRODT PHARMACEUTICALS-T202103071

PATIENT
  Sex: Female
  Weight: 60 kg

DRUGS (2)
  1. ACD?A [Concomitant]
     Active Substance: ANHYDROUS CITRIC ACID\DEXTROSE MONOHYDRATE\SODIUM CITRATE
     Indication: ANTICOAGULANT THERAPY
     Dosage: UNK, A/C RATIO 12:1
     Route: 065
  2. UVADEX [Suspect]
     Active Substance: METHOXSALEN
     Indication: CUTANEOUS T-CELL LYMPHOMA
     Dosage: UNK, FORTNIGHTLY, (EXTRACORPOREAL)
     Route: 050

REACTIONS (2)
  - Chest pain [Recovered/Resolved]
  - Dyspnoea [Recovered/Resolved]

NARRATIVE: CASE EVENT DATE: 20210705
